FAERS Safety Report 25216404 (Version 1)
Quarter: 2025Q2

REPORT INFORMATION
  Report Type: Spontaneous
  Country: FR (occurrence: FR)
  Receive Date: 20250418
  Receipt Date: 20250418
  Transmission Date: 20250716
  Serious: Yes (Death)
  Sender: ROCHE
  Company Number: FR-ROCHE-10000258824

PATIENT
  Age: 67 Year

DRUGS (1)
  1. MABTHERA [Suspect]
     Active Substance: RITUXIMAB
     Indication: Renal transplant
     Route: 065

REACTIONS (2)
  - Death [Fatal]
  - Off label use [Unknown]
